FAERS Safety Report 23218944 (Version 2)
Quarter: 2024Q1

REPORT INFORMATION
  Report Type: Spontaneous
  Country: FR (occurrence: FR)
  Receive Date: 20231122
  Receipt Date: 20240104
  Transmission Date: 20240410
  Serious: Yes (Hospitalization)
  Sender: FDA-Public Use
  Company Number: FR-SUN PHARMACEUTICAL INDUSTRIES LTD-2023RR-419286

PATIENT
  Age: 69 Year
  Sex: Female
  Weight: 57 kg

DRUGS (8)
  1. VENLAFAXINE [Suspect]
     Active Substance: VENLAFAXINE HYDROCHLORIDE
     Indication: Mixed anxiety and depressive disorder
     Dosage: 75 MILLIGRAM, DAILY
     Route: 048
     Dates: start: 20230628, end: 20230808
  2. VENLAFAXINE [Suspect]
     Active Substance: VENLAFAXINE HYDROCHLORIDE
     Dosage: 37.5  MG, DAILY
     Route: 048
     Dates: start: 20230809, end: 20230812
  3. PEPPERMINT [Suspect]
     Active Substance: PEPPERMINT
     Indication: Constipation
     Dosage: UNK
     Route: 048
     Dates: start: 202306, end: 20230727
  4. RHUBARB [Suspect]
     Active Substance: RHUBARB
     Indication: Constipation
     Dosage: UNK
     Route: 048
     Dates: start: 202306, end: 20230727
  5. LICORICE [Suspect]
     Active Substance: LICORICE
     Indication: Constipation
     Dosage: UNK
     Route: 048
     Dates: start: 202306, end: 20230727
  6. PIMPINELLA ANISUM [Suspect]
     Active Substance: PIMPINELLA ANISUM WHOLE
     Indication: Constipation
     Dosage: UNK
     Route: 048
     Dates: start: 202306, end: 20230727
  7. LICORICE ROOT EXTRACT [Suspect]
     Active Substance: LICORICE ROOT EXTRACT
     Indication: Constipation
     Dosage: UNK
     Route: 048
     Dates: start: 202306, end: 20230727
  8. MENTHA PIPERITA [Suspect]
     Active Substance: MENTHA PIPERITA
     Indication: Constipation
     Dosage: UNK
     Route: 048
     Dates: start: 202306, end: 20230727

REACTIONS (1)
  - Inappropriate antidiuretic hormone secretion [Not Recovered/Not Resolved]

NARRATIVE: CASE EVENT DATE: 20230726
